FAERS Safety Report 16475439 (Version 5)
Quarter: 2019Q3

REPORT INFORMATION
  Report Type: Spontaneous
  Country: US (occurrence: US)
  Receive Date: 20190625
  Receipt Date: 20190919
  Transmission Date: 20191004
  Serious: Yes (Hospitalization)
  Sender: FDA-Public Use
  Company Number: US-PFIZER INC-2019264596

PATIENT
  Age: 70 Year
  Sex: Female
  Weight: 55.79 kg

DRUGS (6)
  1. CHANTIX [Suspect]
     Active Substance: VARENICLINE TARTRATE
     Indication: SMOKING CESSATION THERAPY
     Dosage: ONE PILL
     Dates: start: 201407
  2. CHANTIX [Suspect]
     Active Substance: VARENICLINE TARTRATE
     Dosage: 2 PILLS
  3. SIMVASTATIN. [Concomitant]
     Active Substance: SIMVASTATIN
     Indication: BLOOD PRESSURE ABNORMAL
     Dosage: 40 MG, 1X/DAY
     Route: 048
     Dates: start: 2014
  4. CHANTIX [Suspect]
     Active Substance: VARENICLINE TARTRATE
     Dosage: 1 MG, 2X/DAY
     Route: 048
  5. LISINOPRIL. [Concomitant]
     Active Substance: LISINOPRIL
     Indication: BLOOD PRESSURE ABNORMAL
     Dosage: 20 MG, 1X/DAY (TOOK 20MG BACK THEN)
     Route: 048
     Dates: start: 2014
  6. CHANTIX [Suspect]
     Active Substance: VARENICLINE TARTRATE
     Dosage: UNK
     Dates: start: 201907

REACTIONS (6)
  - Malaise [Recovered/Resolved]
  - Nausea [Unknown]
  - Drug hypersensitivity [Unknown]
  - Oxygen saturation decreased [Recovering/Resolving]
  - Weight decreased [Recovering/Resolving]
  - Incorrect product administration duration [Unknown]

NARRATIVE: CASE EVENT DATE: 2018
